FAERS Safety Report 6242324-1 (Version None)
Quarter: 2009Q2

REPORT INFORMATION
  Report Type: 
  Country: None (occurrence: None)
  Receive Date: 20090624
  Receipt Date: 20090617
  Transmission Date: 20091009
  Serious: Yes (Hospitalization)
  Sender: FDA-Public Use
  Company Number: US-BIOGENIDEC-2008BI025476

PATIENT
  Age: 36 Year
  Sex: Female
  Weight: 72 kg

DRUGS (8)
  1. TYSABRI [Suspect]
     Indication: MULTIPLE SCLEROSIS
     Route: 042
     Dates: start: 20061116, end: 20080926
  2. TYSABRI [Suspect]
     Route: 042
     Dates: start: 20050201, end: 20050201
  3. TYSABRI [Suspect]
     Route: 042
     Dates: start: 20090210
  4. AVONEX [Concomitant]
     Indication: MULTIPLE SCLEROSIS
     Dates: start: 20060513, end: 20060721
  5. AVONEX [Concomitant]
  6. WELLBUTRIN [Concomitant]
     Indication: DEPRESSION
     Route: 048
  7. PROZAC [Concomitant]
     Indication: PREMENSTRUAL SYNDROME
     Route: 048
  8. METHADONE [Concomitant]
     Indication: RESTLESS LEGS SYNDROME
     Route: 048

REACTIONS (6)
  - LOCALISED INFECTION [None]
  - LOWER LIMB FRACTURE [None]
  - OSTEOMYELITIS [None]
  - ROAD TRAFFIC ACCIDENT [None]
  - STAPHYLOCOCCAL INFECTION [None]
  - STAPHYLOCOCCAL SEPSIS [None]
